FAERS Safety Report 13492713 (Version 2)
Quarter: 2017Q2

REPORT INFORMATION
  Report Type: Spontaneous
  Country: JP (occurrence: JP)
  Receive Date: 20170427
  Receipt Date: 20170428
  Transmission Date: 20170830
  Serious: Yes (Other)
  Sender: FDA-Public Use
  Company Number: JP-ASTRAZENECA-2017SE43221

PATIENT
  Age: 48 Year
  Sex: Male

DRUGS (1)
  1. MEROPEN [Suspect]
     Active Substance: MEROPENEM
     Indication: SEPSIS
     Dosage: NON-SUMITOMO DAINIPPON PHARMA PRODUCT
     Route: 042

REACTIONS (2)
  - Hepatic enzyme abnormal [Recovered/Resolved]
  - Blood bilirubin abnormal [Recovered/Resolved]
